FAERS Safety Report 10626673 (Version 1)
Quarter: 2014Q4

REPORT INFORMATION
  Report Type: Spontaneous
  Country: US (occurrence: US)
  Receive Date: 20141204
  Receipt Date: 20141204
  Transmission Date: 20150529
  Serious: Yes (Other)
  Sender: FDA-Public Use
  Company Number: US-PFIZER INC-2014324923

PATIENT
  Age: 58 Year
  Sex: Male

DRUGS (13)
  1. PAROXETINE [Interacting]
     Active Substance: PAROXETINE\PAROXETINE HYDROCHLORIDE
     Indication: DEPRESSION
     Dosage: 20 MG, TAKEN ONCE A DAY
  2. PAROXETINE [Interacting]
     Active Substance: PAROXETINE\PAROXETINE HYDROCHLORIDE
     Dosage: 30 MG A DAY
  3. TRAZODONE [Interacting]
     Active Substance: TRAZODONE HYDROCHLORIDE
     Indication: DEPRESSION
     Dosage: 100 MG AT BEDTIME
  4. FUROSEMIDE. [Interacting]
     Active Substance: FUROSEMIDE
     Indication: HYPERTENSION
     Dosage: 40 MG, TWICE A DAY
  5. LEVETIRACETAM. [Interacting]
     Active Substance: LEVETIRACETAM
     Dosage: 500 MG DAILY
  6. DONEPEZIL [Interacting]
     Active Substance: DONEPEZIL
     Indication: DEMENTIA
     Dosage: 10 MG, 1X/DAY
  7. OLANZAPINE. [Interacting]
     Active Substance: OLANZAPINE
     Indication: HUNTINGTON^S DISEASE
     Dosage: 5 MG TWICE A DAY
  8. OXYBUTYNIN [Interacting]
     Active Substance: OXYBUTYNIN
     Indication: URINARY INCONTINENCE
     Dosage: 5 MG, THREE TIMES A DAY
  9. GABAPENTIN. [Suspect]
     Active Substance: GABAPENTIN
     Indication: PAIN
     Dosage: 300 MG THREE TIMES DAILY
  10. LEVETIRACETAM. [Interacting]
     Active Substance: LEVETIRACETAM
     Indication: HUNTINGTON^S DISEASE
     Dosage: 250 MG, DAILY
  11. LEVETIRACETAM. [Interacting]
     Active Substance: LEVETIRACETAM
     Dosage: 750 MG, DAILY, 500MG IN THE MORNING AND 250MG EVENING
  12. OLANZAPINE. [Interacting]
     Active Substance: OLANZAPINE
     Dosage: 5 MG ONCE A DAY AT BEDTIME
  13. TRAZODONE [Interacting]
     Active Substance: TRAZODONE HYDROCHLORIDE
     Indication: SLEEP DISORDER

REACTIONS (5)
  - Somnolence [Recovered/Resolved]
  - Parkinsonism [Recovered/Resolved]
  - Lethargy [Recovered/Resolved]
  - Drug interaction [Recovered/Resolved]
  - Off label use [Recovered/Resolved]
